FAERS Safety Report 12160595 (Version 1)
Quarter: 2016Q1

REPORT INFORMATION
  Report Type: Other
  Country: TR (occurrence: TR)
  Receive Date: 20160308
  Receipt Date: 20160308
  Transmission Date: 20160526
  Serious: Yes (Hospitalization)
  Sender: FDA-Public Use
  Company Number: TR-CONCORDIA PHARMACEUTICALS INC.-CO-PL-TR-2016-085

PATIENT
  Age: 29 Year
  Sex: Female

DRUGS (1)
  1. PLAQUENIL [Suspect]
     Active Substance: HYDROXYCHLOROQUINE SULFATE
     Indication: PRODUCT USED FOR UNKNOWN INDICATION
     Route: 065

REACTIONS (6)
  - Asthenia [None]
  - Somnolence [None]
  - Antiacetylcholine receptor antibody positive [None]
  - Extraocular muscle paresis [None]
  - Muscular weakness [None]
  - Myasthenia gravis [None]
